FAERS Safety Report 16872257 (Version 1)
Quarter: 2019Q4

REPORT INFORMATION
  Report Type: Report from Study
  Country: PK (occurrence: PK)
  Receive Date: 20191001
  Receipt Date: 20191001
  Transmission Date: 20200122
  Serious: Yes (Other)
  Sender: FDA-Public Use
  Company Number: PHHY2019PK224818

PATIENT
  Age: 73 Year
  Sex: Male

DRUGS (1)
  1. VOTRIENT [Suspect]
     Active Substance: PAZOPANIB HYDROCHLORIDE
     Indication: RENAL CANCER
     Dosage: 400 MG, BID
     Route: 048
     Dates: start: 20190901, end: 20190924

REACTIONS (14)
  - Inappropriate schedule of product administration [Unknown]
  - Blood creatinine increased [Recovering/Resolving]
  - Pyrexia [Unknown]
  - Cardiotoxicity [Recovering/Resolving]
  - Platelet count decreased [Recovering/Resolving]
  - Asthenia [Recovering/Resolving]
  - Bradycardia [Recovering/Resolving]
  - Atrial enlargement [Recovering/Resolving]
  - Dyspnoea [Recovering/Resolving]
  - Nephropathy toxic [Recovering/Resolving]
  - Blood pressure increased [Recovering/Resolving]
  - Oedema peripheral [Recovering/Resolving]
  - Fatigue [Unknown]
  - Device leakage [Recovering/Resolving]

NARRATIVE: CASE EVENT DATE: 20190923
